FAERS Safety Report 4916535-9 (Version None)
Quarter: 2006Q1

REPORT INFORMATION
  Report Type: 
  Country: None (occurrence: None)
  Receive Date: 20060220
  Receipt Date: 20050823
  Transmission Date: 20060701
  Serious: Yes (Other)
  Sender: FDA-Public Use
  Company Number: PHEH2005US09351

PATIENT
  Sex: Female

DRUGS (1)
  1. ENABLEX [Suspect]
     Indication: CYSTITIS
     Dates: start: 20050901

REACTIONS (3)
  - BLADDER DISORDER [None]
  - RENAL DISORDER [None]
  - URINARY RETENTION [None]
